FAERS Safety Report 22315156 (Version 1)
Quarter: 2023Q2

REPORT INFORMATION
  Report Type: Spontaneous
  Country: US (occurrence: US)
  Receive Date: 20230512
  Receipt Date: 20230512
  Transmission Date: 20230722
  Serious: Yes (Death, Hospitalization, Other)
  Sender: FDA-Public Use
  Company Number: US-JNJFOC-20230520693

PATIENT
  Age: 70 Year
  Sex: Female

DRUGS (1)
  1. YONDELIS [Suspect]
     Active Substance: TRABECTEDIN
     Indication: Leiomyosarcoma
     Route: 065

REACTIONS (4)
  - Acute kidney injury [Fatal]
  - Encephalopathy [Unknown]
  - Rhabdomyolysis [Unknown]
  - Capillary leak syndrome [Unknown]
